FAERS Safety Report 14519438 (Version 2)
Quarter: 2018Q1

REPORT INFORMATION
  Report Type: Spontaneous
  Country: ES (occurrence: ES)
  Receive Date: 20180212
  Receipt Date: 20180222
  Transmission Date: 20180509
  Serious: Yes (Other)
  Sender: FDA-Public Use
  Company Number: ES-TEVA-2018-ES-855611

PATIENT
  Age: 53 Year
  Sex: Female

DRUGS (5)
  1. TENOFOVIR [Suspect]
     Active Substance: TENOFOVIR
     Indication: HIV INFECTION
     Route: 065
  2. SULFADIAZINE. [Concomitant]
     Active Substance: SULFADIAZINE
     Indication: CEREBRAL TOXOPLASMOSIS
     Route: 065
  3. TRIMETHOPRIM-SULFAMETHOXAZOLE [Concomitant]
     Active Substance: SULFAMETHOXAZOLE\TRIMETHOPRIM
     Indication: PNEUMOCYSTIS JIROVECII PNEUMONIA
     Route: 065
  4. RALTEGRAVIR. [Suspect]
     Active Substance: RALTEGRAVIR
     Indication: HIV INFECTION
     Route: 065
  5. EMTRICITABINE [Suspect]
     Active Substance: EMTRICITABINE
     Indication: HIV INFECTION
     Route: 065

REACTIONS (1)
  - Hidradenitis [Recovered/Resolved]
